FAERS Safety Report 23983845 (Version 3)
Quarter: 2024Q3

REPORT INFORMATION
  Report Type: Spontaneous
  Country: PL (occurrence: PL)
  Receive Date: 20240618
  Receipt Date: 20240930
  Transmission Date: 20241016
  Serious: Yes (Hospitalization, Other)
  Sender: Haleon PLC
  Company Number: PL-BELUPO-SafetyCase004048

PATIENT
  Age: 31 Year
  Sex: Male

DRUGS (28)
  1. DICLOFENAC SODIUM [Suspect]
     Active Substance: DICLOFENAC\DICLOFENAC SODIUM
     Indication: Sacral pain
     Dosage: 150 MG, QD
     Route: 065
  2. DICLOFENAC SODIUM [Suspect]
     Active Substance: DICLOFENAC\DICLOFENAC SODIUM
     Indication: Back pain
  3. DICLOFENAC SODIUM [Suspect]
     Active Substance: DICLOFENAC\DICLOFENAC SODIUM
     Indication: Pain
  4. METOPROLOL [Concomitant]
     Active Substance: METOPROLOL
     Indication: Cardiac disorder
     Dosage: UNK
     Route: 065
  5. FUROSEMIDE [Concomitant]
     Active Substance: FUROSEMIDE
     Indication: Cardiac disorder
     Dosage: UNK
     Route: 042
  6. RAMIPRIL [Interacting]
     Active Substance: RAMIPRIL
     Indication: Hypertension
     Dosage: 10 MG, QD
     Route: 065
  7. RAMIPRIL [Interacting]
     Active Substance: RAMIPRIL
     Indication: Sacral pain
  8. ALPRAZOLAM [Interacting]
     Active Substance: ALPRAZOLAM
     Indication: Insomnia
     Dosage: 1 MG, QD (1 MG AT BEDTIME), I MG HS
     Route: 065
  9. ALPRAZOLAM [Interacting]
     Active Substance: ALPRAZOLAM
     Indication: Anorgasmia
     Dosage: 1 MG, QD (PER NIGHT AT BEDTIME), 1 MG HS
     Route: 065
  10. ALPRAZOLAM [Interacting]
     Active Substance: ALPRAZOLAM
     Indication: Affective disorder
  11. ALPRAZOLAM [Interacting]
     Active Substance: ALPRAZOLAM
     Indication: Anxiety
  12. MORPHINE [Suspect]
     Active Substance: MORPHINE
     Indication: Back pain
     Dosage: 10 MG, UNKNOWN
     Route: 042
  13. MORPHINE [Suspect]
     Active Substance: MORPHINE
     Indication: Analgesic therapy
     Route: 042
  14. ACETAMINOPHEN\TRAMADOL [Suspect]
     Active Substance: ACETAMINOPHEN\TRAMADOL
     Indication: Back pain
     Dosage: UNK UNK, QD (EVERY 1 DAY)
     Route: 042
  15. ACETAMINOPHEN\TRAMADOL [Suspect]
     Active Substance: ACETAMINOPHEN\TRAMADOL
     Indication: Sacral pain
     Dosage: 1 DF, BID (AT A DOSE OF 37.5 / 325 MG TWICE A DAY)
     Route: 042
  16. ACETAMINOPHEN\TRAMADOL [Suspect]
     Active Substance: ACETAMINOPHEN\TRAMADOL
     Indication: Back pain
  17. KETOPROFEN [Suspect]
     Active Substance: KETOPROFEN
     Indication: Analgesic therapy
     Dosage: 100 MG, (INJECTION)
     Route: 042
  18. KETOPROFEN [Suspect]
     Active Substance: KETOPROFEN
     Indication: Back pain
  19. SERTRALINE HYDROCHLORIDE [Interacting]
     Active Substance: SERTRALINE HYDROCHLORIDE
     Indication: Insomnia
     Dosage: 50 MG, QD (IN THE MORNING)
     Route: 065
  20. SERTRALINE HYDROCHLORIDE [Interacting]
     Active Substance: SERTRALINE HYDROCHLORIDE
     Indication: Affective disorder
  21. SERTRALINE HYDROCHLORIDE [Interacting]
     Active Substance: SERTRALINE HYDROCHLORIDE
     Indication: Depression
  22. SERTRALINE HYDROCHLORIDE [Interacting]
     Active Substance: SERTRALINE HYDROCHLORIDE
     Indication: Anxiety
  23. SERTRALINE HYDROCHLORIDE [Interacting]
     Active Substance: SERTRALINE HYDROCHLORIDE
     Indication: Back pain
  24. ATORVASTATIN CALCIUM [Interacting]
     Active Substance: ATORVASTATIN CALCIUM
     Indication: Dyslipidaemia
     Dosage: 40 MG, QD
     Route: 065
  25. TADALAFIL [Interacting]
     Active Substance: TADALAFIL
     Indication: Anorgasmia
     Dosage: 10 MG PRN (CUMULATIVE DOSE TO FIRST REACTION: 50 MG)
     Route: 048
  26. TADALAFIL [Interacting]
     Active Substance: TADALAFIL
     Indication: Insomnia
     Dosage: 10 MG, PRN; ORAL USE
     Route: 048
  27. TADALAFIL [Interacting]
     Active Substance: TADALAFIL
     Indication: Erectile dysfunction
  28. PITAVASTATIN [Concomitant]
     Active Substance: PITAVASTATIN
     Indication: Product used for unknown indication

REACTIONS (19)
  - Erectile dysfunction [Unknown]
  - Drug interaction [Recovered/Resolved]
  - Blood pressure increased [Recovering/Resolving]
  - Drug ineffective [Unknown]
  - Condition aggravated [Unknown]
  - Insomnia [Recovering/Resolving]
  - Drug level increased [Unknown]
  - Tachycardia [Recovering/Resolving]
  - Depression [Unknown]
  - Ill-defined disorder [Unknown]
  - Anorgasmia [Unknown]
  - Sacral pain [Recovered/Resolved]
  - Tachypnoea [Recovering/Resolving]
  - Hyperaesthesia [Unknown]
  - Pain [Unknown]
  - Product use in unapproved indication [Unknown]
  - Back pain [Unknown]
  - Affective disorder [Recovering/Resolving]
  - Neuralgia [Unknown]
